APPROVED DRUG PRODUCT: MEMANTINE HYDROCHLORIDE
Active Ingredient: MEMANTINE HYDROCHLORIDE
Strength: 21MG
Dosage Form/Route: CAPSULE, EXTENDED RELEASE;ORAL
Application: A205784 | Product #003
Applicant: PH HEALTH LTD
Approved: Jun 9, 2017 | RLD: No | RS: No | Type: DISCN